FAERS Safety Report 4309764-9 (Version None)
Quarter: 2004Q1

REPORT INFORMATION
  Report Type: 
  Country: None (occurrence: None)
  Receive Date: 20040301
  Receipt Date: 20040217
  Transmission Date: 20041129
  Serious: Yes (Disabling)
  Sender: FDA-Public Use
  Company Number: HQWYE389827AUG03

PATIENT
  Age: 43 Year
  Sex: Male
  Weight: 102.15 kg

DRUGS (15)
  1. EFFEXOR XR [Suspect]
     Indication: MAJOR DEPRESSION
  2. EFFEXOR XR [Suspect]
     Indication: PANIC DISORDER
  3. ALCOHOL (ETHANOL, ) [Suspect]
  4. EFFEXOR [Suspect]
     Indication: DEPRESSION
  5. EFFEXOR [Suspect]
     Indication: PANIC DISORDER
  6. VASOTEC [Concomitant]
  7. ZOCOR [Concomitant]
  8. ULTRAM [Concomitant]
  9. MARIJUANA (CANNABIS) [Concomitant]
  10. ATIVAN [Concomitant]
  11. OXAPROZIN [Concomitant]
  12. LIPITOR [Concomitant]
  13. VIOXX [Concomitant]
  14. METAXALONE [Concomitant]
  15. DARVOCET-N (DEXTROPROPOXYPHENE/PARACETAMOL) [Concomitant]

REACTIONS (13)
  - AMNESIA [None]
  - BLOOD TRIGLYCERIDES INCREASED [None]
  - DEPRESSION [None]
  - DIARRHOEA [None]
  - DRUG WITHDRAWAL SYNDROME [None]
  - DYSPNOEA [None]
  - FALL [None]
  - GAIT DISTURBANCE [None]
  - HEAD INJURY [None]
  - HEPATOCELLULAR DAMAGE [None]
  - LOSS OF CONSCIOUSNESS [None]
  - PANIC ATTACK [None]
  - SEXUAL DYSFUNCTION [None]
